FAERS Safety Report 9697238 (Version 1)
Quarter: 2013Q4

REPORT INFORMATION
  Report Type: Report from Study
  Country: NL (occurrence: NL)
  Receive Date: 20131120
  Receipt Date: 20131120
  Transmission Date: 20140711
  Serious: Yes (Hospitalization)
  Sender: FDA-Public Use
  Company Number: NL-ROCHE-1303074

PATIENT
  Age: 66 Year
  Sex: Male

DRUGS (11)
  1. BEVACIZUMAB [Suspect]
     Indication: COLON CANCER
     Dosage: LAST DOSE PRIOR TO EVENT: 20/SEP/2012 (CYCLE 2)
     Route: 065
  2. CAPECITABINE [Suspect]
     Indication: COLON CANCER
     Dosage: LAST DOSE PRIOR TO DECREASED RENAL FAILURE: 20/SEP/2012 (CYCLE 2)?LAST DOSE PRIOR TO NAUSEA: 25/JAN/
     Route: 065
     Dates: start: 20120907
  3. CAPECITABINE [Suspect]
     Route: 065
     Dates: start: 20121109
  4. CAPECITABINE [Suspect]
     Route: 065
     Dates: start: 20130125
  5. OXALIPLATIN [Suspect]
     Indication: COLON CANCER
     Dosage: LAST DOSE PRIOR TO EVENT: 20/SEP/2012 (CYCLE 2)
     Route: 065
     Dates: start: 20120907
  6. CLOBETASOL CREAM [Concomitant]
     Dosage: 0.5MG/G
     Route: 065
     Dates: start: 20130107
  7. LISINOPRIL [Concomitant]
  8. RANITIDINE [Concomitant]
     Route: 065
     Dates: start: 20121002
  9. RANITIDINE [Concomitant]
     Route: 065
     Dates: start: 20130211
  10. KALIUM CHLORID [Concomitant]
     Route: 065
     Dates: start: 20130211
  11. METOCLOPRAMIDE [Concomitant]
     Route: 065

REACTIONS (2)
  - Nausea [Unknown]
  - Renal impairment [Unknown]
